FAERS Safety Report 5612602-5 (Version None)
Quarter: 2008Q1

REPORT INFORMATION
  Report Type: 
  Country: None (occurrence: None)
  Receive Date: 20080204
  Receipt Date: 20080124
  Transmission Date: 20080703
  Serious: Yes (Hospitalization)
  Sender: FDA-Public Use
  Company Number: B0498281A

PATIENT
  Age: 13 Month
  Sex: Female

DRUGS (4)
  1. AMOXIL [Suspect]
     Indication: FEBRILE INFECTION
     Dosage: 3.5ML THREE TIMES PER DAY
     Route: 048
     Dates: start: 20071108, end: 20071112
  2. KLARICID [Suspect]
     Dosage: 3ML TWICE PER DAY
     Route: 048
     Dates: start: 20071113, end: 20071114
  3. DEPON [Concomitant]
     Dates: start: 20071108, end: 20071114
  4. PONSTAN [Concomitant]
     Dates: start: 20071108, end: 20071113

REACTIONS (4)
  - PYREXIA [None]
  - RASH [None]
  - RASH MACULO-PAPULAR [None]
  - VASCULITIS [None]
